FAERS Safety Report 7648238-4 (Version None)
Quarter: 2011Q3

REPORT INFORMATION
  Report Type: 
  Country: None (occurrence: None)
  Receive Date: 20110801
  Receipt Date: 20110729
  Transmission Date: 20111222
  Serious: Yes (Disabling, Other)
  Sender: FDA-Public Use
  Company Number: US-PFIZER INC-2011158634

PATIENT
  Sex: Male
  Weight: 73 kg

DRUGS (4)
  1. LYRICA [Interacting]
     Indication: HYPOAESTHESIA
     Dosage: 150 MG, 3X/DAY
     Route: 048
     Dates: start: 20100101
  2. LYRICA [Suspect]
     Indication: NEUROPATHY PERIPHERAL
     Dosage: 100 MG, 3X/DAY
     Route: 048
     Dates: start: 20100101, end: 20100101
  3. ALCOHOL [Interacting]
     Dosage: UNK
  4. LYRICA [Interacting]
     Indication: PAIN IN EXTREMITY
     Dosage: 150 MG, 2X/DAY
     Route: 048
     Dates: start: 20100101, end: 20100101

REACTIONS (10)
  - EUPHORIC MOOD [None]
  - HALLUCINATION [None]
  - SOMNOLENCE [None]
  - VISION BLURRED [None]
  - DRUG INEFFECTIVE [None]
  - HYPOAESTHESIA [None]
  - ALCOHOL INTERACTION [None]
  - VISUAL ACUITY REDUCED [None]
  - GAIT DISTURBANCE [None]
  - PAIN [None]
